FAERS Safety Report 7340418-0 (Version None)
Quarter: 2011Q1

REPORT INFORMATION
  Report Type: 
  Country: None (occurrence: None)
  Receive Date: 20110309
  Receipt Date: 20110301
  Transmission Date: 20110831
  Serious: No
  Sender: FDA-Public Use
  Company Number: CA-JNJFOC-20110300356

PATIENT
  Age: 58 Year
  Sex: Male

DRUGS (3)
  1. PERCOCET [Concomitant]
     Route: 065
  2. DURAGESIC-50 [Suspect]
     Indication: PAIN
     Dosage: 100 UG/HR + 25 UG/HR = 125 UG/HR PATCHES
     Route: 062
  3. DURAGESIC-50 [Suspect]
     Indication: BACK PAIN
     Dosage: 100 UG/HR + 25 UG/HR = 125 UG/HR PATCHES
     Route: 062

REACTIONS (2)
  - INAPPROPRIATE SCHEDULE OF DRUG ADMINISTRATION [None]
  - DRUG INEFFECTIVE [None]
